FAERS Safety Report 9195152 (Version 1)
Quarter: 2013Q1

REPORT INFORMATION
  Report Type: Spontaneous
  Country: US (occurrence: US)
  Receive Date: 20130328
  Receipt Date: 20130328
  Transmission Date: 20140127
  Serious: No
  Sender: FDA-Public Use
  Company Number: US-ALLERGAN-1213274US

PATIENT
  Sex: Male

DRUGS (5)
  1. LUMIGAN [Suspect]
     Indication: GLAUCOMA
     Dosage: UNK UNK, QD
     Route: 047
     Dates: start: 20041229
  2. ALPHAGAN? P [Concomitant]
     Indication: GLAUCOMA
     Dosage: UNK UNK, QD
     Route: 047
  3. ALPHAGAN? P [Concomitant]
     Dosage: UNK, BID
     Route: 047
  4. ALPHAGAN? P [Concomitant]
     Dosage: UNK, TID
     Route: 047
  5. COSOPT [Concomitant]
     Indication: GLAUCOMA
     Route: 047

REACTIONS (2)
  - Off label use [Unknown]
  - Skin discolouration [Not Recovered/Not Resolved]
